FAERS Safety Report 4779367-0 (Version None)
Quarter: 2005Q3

REPORT INFORMATION
  Report Type: 
  Country: None (occurrence: None)
  Receive Date: 20050923
  Receipt Date: 20050913
  Transmission Date: 20060218
  Serious: No
  Sender: FDA-Public Use
  Company Number: 2005BI009292

PATIENT
  Age: 42 Year
  Sex: Female

DRUGS (1)
  1. AVONEX [Suspect]
     Indication: MULTIPLE SCLEROSIS
     Dosage: 30 UG; QW; IM
     Route: 030

REACTIONS (5)
  - DRUG HYPERSENSITIVITY [None]
  - FACE INJURY [None]
  - HEADACHE [None]
  - PAIN [None]
  - ROAD TRAFFIC ACCIDENT [None]
